FAERS Safety Report 24617232 (Version 1)
Quarter: 2024Q4

REPORT INFORMATION
  Report Type: Spontaneous
  Country: US (occurrence: US)
  Receive Date: 20241114
  Receipt Date: 20241114
  Transmission Date: 20250115
  Serious: No
  Sender: ELI LILLY AND COMPANY
  Company Number: US-ELI_LILLY_AND_COMPANY-US202411007361

PATIENT
  Age: 56 Year
  Sex: Female

DRUGS (1)
  1. OMVOH [Suspect]
     Active Substance: MIRIKIZUMAB-MRKZ
     Indication: Product used for unknown indication
     Dosage: UNK UNK, UNKNOWN
     Route: 065

REACTIONS (7)
  - Erythema [Unknown]
  - Mass [Unknown]
  - Chest discomfort [Unknown]
  - Dizziness [Unknown]
  - Hepatic enzyme increased [Unknown]
  - Rash pruritic [Unknown]
  - Headache [Unknown]
